FAERS Safety Report 6271825-5 (Version None)
Quarter: 2009Q3

REPORT INFORMATION
  Report Type: 
  Country: None (occurrence: None)
  Receive Date: 20090717
  Receipt Date: 20090707
  Transmission Date: 20100115
  Serious: Yes (Other)
  Sender: FDA-Public Use
  Company Number: US-AMGEN-QUU353731

PATIENT
  Sex: Female
  Weight: 61 kg

DRUGS (6)
  1. NEULASTA [Suspect]
     Indication: CHEMOTHERAPY
     Route: 058
     Dates: start: 20041105
  2. ARANESP [Suspect]
     Indication: ANAEMIA OF MALIGNANT DISEASE
     Route: 058
     Dates: start: 20041203
  3. ADRIAMYCIN RDF [Suspect]
     Dates: start: 20041107, end: 20041216
  4. TAXOL [Concomitant]
     Dates: start: 20041201
  5. CYTOXAN [Concomitant]
     Dates: start: 20041201
  6. VITAMINS [Concomitant]

REACTIONS (2)
  - ANAEMIA [None]
  - PALMAR-PLANTAR ERYTHRODYSAESTHESIA SYNDROME [None]
